FAERS Safety Report 21595588 (Version 2)
Quarter: 2022Q4

REPORT INFORMATION
  Report Type: Spontaneous
  Country: US (occurrence: US)
  Receive Date: 20221115
  Receipt Date: 20221129
  Transmission Date: 20230113
  Serious: Yes (Other)
  Sender: FDA-Public Use
  Company Number: US-CHEMOCENTRYX, INC.-2022USCCXI0473

PATIENT

DRUGS (2)
  1. TAVNEOS [Suspect]
     Active Substance: AVACOPAN
     Indication: Anti-neutrophil cytoplasmic antibody positive vasculitis
     Dosage: 30 MG, 2X/DAY
     Route: 065
     Dates: end: 202204
  2. TAVNEOS [Suspect]
     Active Substance: AVACOPAN
     Indication: Microscopic polyangiitis
     Dosage: 30 MG, 2X/DAY
     Route: 065
     Dates: start: 20221108

REACTIONS (12)
  - Blindness [Recovered/Resolved]
  - Deafness [Unknown]
  - Blister [Unknown]
  - Ageusia [Unknown]
  - Anosmia [Unknown]
  - Diplopia [Unknown]
  - Visual impairment [Unknown]
  - Toothache [Unknown]
  - Gingival pain [Unknown]
  - Ear pain [Unknown]
  - Disturbance in attention [Unknown]
  - Unevaluable event [Unknown]
